FAERS Safety Report 7884716-0 (Version None)
Quarter: 2011Q4

REPORT INFORMATION
  Report Type: 
  Country: None (occurrence: None)
  Receive Date: 20111102
  Receipt Date: 20111027
  Transmission Date: 20120403
  Serious: Yes (Hospitalization)
  Sender: FDA-Public Use
  Company Number: US-EISAI INC-E2020-09902-SPO-US

PATIENT
  Age: 84 Year
  Sex: Male

DRUGS (19)
  1. QUETIAPINE [Concomitant]
     Indication: AGITATION
     Dosage: 12.5 MG
  2. ATENOLOL [Concomitant]
     Dosage: 50 MG
  3. MIRTAZAPINE [Concomitant]
     Dosage: 30 MG
  4. ASPIRIN [Concomitant]
  5. LISINOPRIL [Concomitant]
  6. PRAVASTATIN [Concomitant]
  7. BUPROPION HCL [Interacting]
  8. MIRTAZAPINE [Concomitant]
  9. RISPERIDONE [Concomitant]
     Indication: AGITATION
     Dosage: UNKNOWN
  10. HYDROCHLOROTHIAZIDE [Concomitant]
  11. GABAPENTIN [Concomitant]
  12. OMEPRAZOLE [Concomitant]
  13. ACETAMINOPHEN [Concomitant]
  14. NITROGLYCERIN [Concomitant]
     Indication: CHEST PAIN
     Route: 060
  15. LIDOCAINE [Concomitant]
     Route: 061
  16. BUPROPION HCL [Interacting]
  17. ALLOPURINOL [Concomitant]
  18. BUPROPION HCL [Interacting]
  19. DONEPEZIL HCL [Suspect]
     Route: 048

REACTIONS (3)
  - HALLUCINATION, VISUAL [None]
  - DELUSION [None]
  - DRUG INTERACTION [None]
